FAERS Safety Report 14009445 (Version 1)
Quarter: 2017Q3

REPORT INFORMATION
  Report Type: Spontaneous
  Country: US (occurrence: US)
  Receive Date: 20170925
  Receipt Date: 20170925
  Transmission Date: 20171128
  Serious: No
  Sender: FDA-Public Use
  Company Number: US-SUNOVION-2017SUN003975

PATIENT
  Age: 38 Year
  Sex: Female
  Weight: 98.87 kg

DRUGS (1)
  1. LATUDA [Suspect]
     Active Substance: LURASIDONE HYDROCHLORIDE
     Indication: BIPOLAR DISORDER
     Dosage: 20 MG, UNK
     Route: 048
     Dates: start: 2015, end: 201709

REACTIONS (6)
  - Feeling abnormal [Not Recovered/Not Resolved]
  - Thinking abnormal [Not Recovered/Not Resolved]
  - Anger [Not Recovered/Not Resolved]
  - Depressed mood [Not Recovered/Not Resolved]
  - Drug dose omission [Not Recovered/Not Resolved]
  - Mood swings [Not Recovered/Not Resolved]

NARRATIVE: CASE EVENT DATE: 201709
